FAERS Safety Report 8917506 (Version 1)
Quarter: 2012Q4

REPORT INFORMATION
  Report Type: 
  Country: US (occurrence: US)
  Receive Date: 20121120
  Receipt Date: 20121120
  Transmission Date: 20130627
  Serious: Yes (Hospitalization, Other)
  Sender: FDA-Public Use
  Company Number: US-PFIZER INC-2012287897

PATIENT
  Age: 63 Year
  Sex: Female
  Weight: 63.49 kg

DRUGS (1)
  1. CELEBREX [Suspect]
     Indication: ARTHRITIS
     Dosage: 200 mg, daily
     Dates: start: 2001

REACTIONS (3)
  - Back disorder [Unknown]
  - Spinal cord injury [Unknown]
  - Intervertebral disc protrusion [Unknown]
